FAERS Safety Report 7686377-2 (Version None)
Quarter: 2011Q3

REPORT INFORMATION
  Report Type: 
  Country: None (occurrence: None)
  Receive Date: 20110816
  Receipt Date: 20110810
  Transmission Date: 20111222
  Serious: Yes (Hospitalization, Other)
  Sender: FDA-Public Use
  Company Number: FR-PFIZER INC-2011183223

PATIENT
  Age: 88 Year
  Sex: Female

DRUGS (11)
  1. LASIX [Suspect]
     Dosage: UNK
     Route: 048
     Dates: end: 20110719
  2. LEVOTHYROXINE SODIUM [Concomitant]
  3. KETOCONAZOLE [Suspect]
     Dosage: UNK
     Route: 003
     Dates: end: 20110719
  4. PREVISCAN [Suspect]
     Dosage: 5 MG, 1X/DAY
     Route: 048
     Dates: end: 20110719
  5. ATENOLOL [Concomitant]
  6. DIGOXIN [Concomitant]
  7. PARACETAMOL [Concomitant]
  8. NEXIUM [Concomitant]
     Route: 048
  9. EFFEXOR XR [Suspect]
     Dosage: 37.5 MG, 1X/DAY
     Route: 048
     Dates: start: 20110621, end: 20110719
  10. NITROGLYCERIN [Suspect]
     Dosage: UNK
     Route: 003
     Dates: end: 20110719
  11. ACUPAN [Suspect]
     Dosage: UNK
     Route: 048
     Dates: end: 20110719

REACTIONS (2)
  - INTERNATIONAL NORMALISED RATIO INCREASED [None]
  - SUBCUTANEOUS HAEMATOMA [None]
